FAERS Safety Report 5949378-8 (Version None)
Quarter: 2008Q4

REPORT INFORMATION
  Report Type: 
  Country: None (occurrence: None)
  Receive Date: 20081112
  Receipt Date: 20081013
  Transmission Date: 20090506
  Serious: Yes (Life-Threatening, Other)
  Sender: FDA-Public Use
  Company Number: PHBS1999NO08196

PATIENT
  Sex: Female

DRUGS (2)
  1. TEGRETOL [Suspect]
     Route: 048
     Dates: start: 19970101, end: 19980501
  2. TOPIRAMATE [Interacting]
     Route: 065

REACTIONS (9)
  - COMA HEPATIC [None]
  - DRUG INTERACTION [None]
  - ENCEPHALOPATHY [None]
  - HEPATIC FAILURE [None]
  - HEPATIC NECROSIS [None]
  - HEPATORENAL SYNDROME [None]
  - LIVER TRANSPLANT [None]
  - LOSS OF CONSCIOUSNESS [None]
  - WEIGHT DECREASED [None]
